FAERS Safety Report 18664813 (Version 2)
Quarter: 2021Q2

REPORT INFORMATION
  Report Type: Report from Study
  Country: IE (occurrence: IE)
  Receive Date: 20201225
  Receipt Date: 20210624
  Transmission Date: 20210717
  Serious: Yes (Hospitalization)
  Sender: FDA-Public Use
  Company Number: IE-EMD SERONO-9208646

PATIENT
  Age: 34 Year
  Sex: Female

DRUGS (4)
  1. MAVENCLAD [Suspect]
     Active Substance: CLADRIBINE
     Dosage: YEAR TWO WEEK ONE THERAPY: TWO DOSAGE FORMS ON DAY 1 AND ONE DOSAGE FORM ON DAYS 2 TO 5.
     Route: 048
     Dates: start: 20191216
  2. MAVENCLAD [Suspect]
     Active Substance: CLADRIBINE
     Indication: RELAPSING-REMITTING MULTIPLE SCLEROSIS
     Dosage: YEAR ONE WEEK ONE THERAPY: TWO DOSAGE FORMS ON DAY 1 AND ONE DOSAGE FORM ON DAYS 2 TO 5.
     Route: 048
     Dates: start: 20181217
  3. MAVENCLAD [Suspect]
     Active Substance: CLADRIBINE
     Dosage: YEAR TWO WEEK FIVE THERAPY: TWO DOSAGE FORMS ON DAY 1 AND ONE DOSAGE FORM ON DAYS 2 TO 5.
     Route: 048
     Dates: start: 20200113
  4. MAVENCLAD [Suspect]
     Active Substance: CLADRIBINE
     Dosage: YEAR ONE WEEK FIVE THERAPY: TWO DOSAGE FORMS ON DAY 1 AND ONE DOSAGE FORM ON DAYS 2 TO 5.
     Route: 048
     Dates: start: 20190114

REACTIONS (1)
  - Device related infection [Recovered/Resolved]

NARRATIVE: CASE EVENT DATE: 202010
